FAERS Safety Report 17398104 (Version 1)
Quarter: 2020Q1

REPORT INFORMATION
  Report Type: Spontaneous
  Country: GB (occurrence: GB)
  Receive Date: 20200210
  Receipt Date: 20200210
  Transmission Date: 20200409
  Serious: Yes (Disabling)
  Sender: FDA-Public Use
  Company Number: GB-MYLANLABS-2020M1014040

PATIENT
  Age: 78 Year
  Sex: Male
  Weight: 65 kg

DRUGS (12)
  1. BISOPROLOL [Suspect]
     Active Substance: BISOPROLOL
     Indication: HYPERTENSION
     Dosage: IN MORNING
     Route: 048
  2. ATORVASTATIN [Concomitant]
     Active Substance: ATORVASTATIN
  3. TEICOPLANIN [Concomitant]
     Active Substance: TEICOPLANIN
  4. CALCIUM CARBONATE. [Concomitant]
     Active Substance: CALCIUM CARBONATE
     Dosage: UNK
  5. LAXIDO [Concomitant]
     Active Substance: POLYETHYLENE GLYCOL 3350\POTASSIUM CHLORIDE\SODIUM BICARBONATE\SODIUM CHLORIDE
  6. PARACETAMOL [Concomitant]
     Active Substance: ACETAMINOPHEN
  7. FLUDROCORTISONE [Concomitant]
     Active Substance: FLUDROCORTISONE
  8. VITAMIN D3 [Concomitant]
     Active Substance: CHOLECALCIFEROL
  9. FERROUS GLUCONATE [Concomitant]
     Active Substance: FERROUS GLUCONATE
  10. OMEPRAZOLE. [Concomitant]
     Active Substance: OMEPRAZOLE
     Dosage: UNK
  11. DOCUSATE [Concomitant]
     Active Substance: DOCUSATE
     Dosage: UNK
  12. GENTAMICIN. [Concomitant]
     Active Substance: GENTAMICIN
     Dosage: UNK

REACTIONS (1)
  - Orthostatic hypotension [Not Recovered/Not Resolved]
